FAERS Safety Report 7967084-5 (Version None)
Quarter: 2011Q4

REPORT INFORMATION
  Report Type: 
  Country: None (occurrence: None)
  Receive Date: 20111209
  Receipt Date: 20111128
  Transmission Date: 20120403
  Serious: Yes (Other)
  Sender: FDA-Public Use
  Company Number: US-PERRIGO-11US010482

PATIENT
  Age: 20 Year
  Sex: Male
  Weight: 79.819 kg

DRUGS (4)
  1. TYLENOL PM [Suspect]
     Indication: SLEEP DISORDER
  2. IBUPROFEN AND DIPHENHYDRAMINE [Suspect]
     Indication: HEADACHE
  3. TYLENOL PM [Suspect]
     Indication: HEADACHE
     Dosage: 8 DF, SINGLE
     Route: 048
     Dates: start: 20111127, end: 20111127
  4. IBUPROFEN AND DIPHENHYDRAMINE [Suspect]
     Indication: SLEEP DISORDER
     Dosage: 4 CAPLETS FOLLOWED BY ADDITIONAL 4 CAPLETS 25 MINUTES LATER
     Route: 048
     Dates: start: 20111127, end: 20111127

REACTIONS (3)
  - OVERDOSE [None]
  - DIZZINESS [None]
  - SENSORY DISTURBANCE [None]
